FAERS Safety Report 12640635 (Version 1)
Quarter: 2016Q3

REPORT INFORMATION
  Report Type: Report from Study
  Country: BR (occurrence: BR)
  Receive Date: 20160810
  Receipt Date: 20160810
  Transmission Date: 20161109
  Serious: Yes (Hospitalization)
  Sender: FDA-Public Use
  Company Number: PHHY2016BR108312

PATIENT
  Sex: Female
  Weight: 70 kg

DRUGS (1)
  1. FORASEQ [Suspect]
     Active Substance: BUDESONIDE\FORMOTEROL FUMARATE
     Indication: ASTHMA
     Dosage: 1 DF (FORMOTEROL FUMARATE UNKNOWN, BUDESONIDE 400 UG), BID
     Route: 055

REACTIONS (4)
  - Asthmatic crisis [Recovering/Resolving]
  - Pneumonia [Recovering/Resolving]
  - Malaise [Recovering/Resolving]
  - Bronchitis [Recovering/Resolving]
